FAERS Safety Report 26100371 (Version 5)
Quarter: 2025Q4

REPORT INFORMATION
  Report Type: Spontaneous
  Country: EU (occurrence: EU)
  Receive Date: 20251128
  Receipt Date: 20251224
  Transmission Date: 20260117
  Serious: Yes (Hospitalization, Other)
  Sender: AMICUS THERAPEUTICS
  Company Number: EU-AMICUS THERAPEUTICS, INC.-AMI_4531

PATIENT
  Age: 27 Year
  Sex: Male

DRUGS (7)
  1. GALAFOLD [Suspect]
     Active Substance: MIGALASTAT HYDROCHLORIDE
     Indication: Fabry^s disease
     Dosage: 123 MILLIGRAM, QOD
     Route: 048
     Dates: start: 20200307, end: 20230930
  2. TACROLIMUS [Concomitant]
     Active Substance: TACROLIMUS
     Indication: Product used for unknown indication
     Dosage: 4 MILLIGRAM, QD WITH DOSE ADJUSTMENT BASED ON TACROLINEMIA
     Route: 065
  3. MYFORTIC [Concomitant]
     Active Substance: MYCOPHENOLATE SODIUM
     Indication: Product used for unknown indication
     Dosage: 4 TABLETS, QD (2-0-2)
     Route: 065
  4. PREDNISONE [Concomitant]
     Active Substance: PREDNISONE
     Indication: Product used for unknown indication
     Dosage: 5 MILLIGRAM (1 TABLET), QD (1-0-0)
     Route: 065
  5. ATACAND [Concomitant]
     Active Substance: CANDESARTAN CILEXETIL
     Indication: Hypertension
     Dosage: 16 MILLIGRAM (1 TABLET), QD (0-0-1)
     Route: 065
  6. NORVASC [Concomitant]
     Active Substance: AMLODIPINE BESYLATE
     Indication: Hypertension
     Dosage: 5 MILLIGRAM (1 TABLET), QD
     Route: 065
  7. GABAPENTIN [Concomitant]
     Active Substance: GABAPENTIN
     Indication: Product used for unknown indication
     Dosage: 300 MILLIGRAM (1 TABLET), QD (0-0-1)
     Route: 065

REACTIONS (11)
  - Acute kidney injury [Unknown]
  - Anuria [Unknown]
  - Pyelonephritis [Unknown]
  - Transplant rejection [Unknown]
  - Atypical haemolytic uraemic syndrome [Unknown]
  - Acute respiratory failure [Unknown]
  - Sepsis [Unknown]
  - Anaemia [Unknown]
  - Hypertension [Unknown]
  - Microangiopathy [Unknown]
  - Arteriosclerosis [Unknown]

NARRATIVE: CASE EVENT DATE: 20230929
